FAERS Safety Report 15251011 (Version 2)
Quarter: 2018Q3

REPORT INFORMATION
  Report Type: Report from Study
  Country: US (occurrence: US)
  Receive Date: 20180807
  Receipt Date: 20180822
  Transmission Date: 20181010
  Serious: Yes (Other)
  Sender: FDA-Public Use
  Company Number: PHEH2018US031725

PATIENT
  Sex: Female
  Weight: 69.39 kg

DRUGS (1)
  1. TASIGNA [Suspect]
     Active Substance: NILOTINIB
     Indication: CHRONIC MYELOID LEUKAEMIA
     Dosage: 2 DF, QD
     Route: 048
     Dates: start: 20180108

REACTIONS (2)
  - Anxiety [Recovered/Resolved]
  - Leukaemia [Unknown]
